FAERS Safety Report 4610483-X (Version None)
Quarter: 2005Q1

REPORT INFORMATION
  Report Type: 
  Country: None (occurrence: None)
  Receive Date: 20050315
  Receipt Date: 20050302
  Transmission Date: 20050727
  Serious: Yes (Other)
  Sender: FDA-Public Use
  Company Number: HQWYE793203MAR05

PATIENT
  Age: 39 Year
  Sex: Female

DRUGS (2)
  1. EFFEXOR [Suspect]
     Dosage: 150 MG - FREQUENCY UNSPECIFIED
     Dates: end: 20050213
  2. WELLBUTRIN XL [Suspect]
     Indication: DEPRESSION
     Dosage: 150 MG 1X PER 1 DAY, ORAL
     Route: 048
     Dates: start: 20050213

REACTIONS (3)
  - DRUG WITHDRAWAL SYNDROME [None]
  - HALLUCINATION [None]
  - HYPERHIDROSIS [None]
